FAERS Safety Report 15749738 (Version 1)
Quarter: 2018Q4

REPORT INFORMATION
  Report Type: Spontaneous
  Country: US (occurrence: US)
  Receive Date: 20181220
  Receipt Date: 20181220
  Transmission Date: 20190205
  Serious: Yes (Hospitalization)
  Sender: FDA-Public Use
  Company Number: None

PATIENT
  Age: 30 Year
  Sex: Female

DRUGS (5)
  1. PANTOPRAZOLE 40MG [Concomitant]
     Active Substance: PANTOPRAZOLE SODIUM
  2. CLOBETASOL OIN 0.05% [Concomitant]
  3. NYSTAIN 100000 [Concomitant]
  4. HUMIRA [Suspect]
     Active Substance: ADALIMUMAB
     Indication: PSORIASIS
     Dosage: ?          OTHER FREQUENCY:Q OTHER WEEK;?
     Route: 058
     Dates: start: 20151123, end: 20181219
  5. LITHIUM CARB 300MG [Concomitant]

REACTIONS (2)
  - Oesophageal disorder [None]
  - Swelling [None]

NARRATIVE: CASE EVENT DATE: 20180901
